FAERS Safety Report 22254175 (Version 1)
Quarter: 2023Q2

REPORT INFORMATION
  Report Type: Spontaneous
  Country: US (occurrence: None)
  Receive Date: 20230424
  Receipt Date: 20230424
  Transmission Date: 20230721
  Serious: No
  Sender: FDA-Public Use
  Company Number: None

PATIENT
  Sex: Male

DRUGS (1)
  1. NEXAVAR [Suspect]
     Active Substance: SORAFENIB
     Dosage: FREQUENCY : TWICE A DAY;?
     Route: 048

REACTIONS (2)
  - Acute myeloid leukaemia [None]
  - Off label use [None]
